FAERS Safety Report 17899860 (Version 1)
Quarter: 2020Q2

REPORT INFORMATION
  Report Type: Spontaneous
  Country: US (occurrence: US)
  Receive Date: 20200615
  Receipt Date: 20200615
  Transmission Date: 20200714
  Serious: No
  Sender: FDA-Public Use
  Company Number: None

PATIENT
  Age: 41 Year
  Sex: Female
  Weight: 67.5 kg

DRUGS (10)
  1. QBREXZA [Suspect]
     Active Substance: GLYCOPYRRONIUM TOSYLATE
     Indication: HYPERHIDROSIS
     Dosage: ?          QUANTITY:1 WIPE;?
     Route: 061
  2. METHOTREXATE. [Concomitant]
     Active Substance: METHOTREXATE
  3. FOLIC ACID. [Concomitant]
     Active Substance: FOLIC ACID
  4. MAGNESIUM [Concomitant]
     Active Substance: MAGNESIUM
  5. ZYRTEC [Concomitant]
     Active Substance: CETIRIZINE HYDROCHLORIDE
  6. ALEVE [Concomitant]
     Active Substance: NAPROXEN SODIUM
  7. FLONASE [Concomitant]
     Active Substance: FLUTICASONE PROPIONATE
  8. HUMIRA [Concomitant]
     Active Substance: ADALIMUMAB
  9. FISH OIL [Concomitant]
     Active Substance: FISH OIL
  10. MULTIVITAMIN [Concomitant]
     Active Substance: VITAMINS

REACTIONS (6)
  - Dry mouth [None]
  - Skin fissures [None]
  - Conjunctival irritation [None]
  - Constipation [None]
  - Oropharyngeal pain [None]
  - Dry eye [None]

NARRATIVE: CASE EVENT DATE: 20200601
